FAERS Safety Report 25812109 (Version 2)
Quarter: 2025Q4

REPORT INFORMATION
  Report Type: Other
  Country: CA (occurrence: CA)
  Receive Date: 20250917
  Receipt Date: 20251027
  Transmission Date: 20260118
  Serious: Yes (Hospitalization, Other)
  Sender: APOTEX
  Company Number: CA-PGRTD-E2B_08086255

PATIENT
  Age: 38 Year
  Sex: Female
  Weight: 47.8 kg

DRUGS (13)
  1. APIXABAN [Suspect]
     Active Substance: APIXABAN
     Indication: Deep vein thrombosis
     Dosage: 1 EVERY 1 DAYS
     Route: 048
  2. ACETAMINOPHEN [Concomitant]
     Active Substance: ACETAMINOPHEN
     Indication: Chest pain
     Dosage: 1 EVERY 4 HOURS
     Route: 048
  3. ACETAMINOPHEN [Concomitant]
     Active Substance: ACETAMINOPHEN
     Indication: Pain
     Dosage: 975 MILLIGRAM
     Route: 048
  4. ACETAMINOPHEN [Concomitant]
     Active Substance: ACETAMINOPHEN
     Dosage: 1 EVERY 1 DAYS
     Route: 048
  5. AMOXICILLIN\CLAVULANATE POTASSIUM [Concomitant]
     Active Substance: AMOXICILLIN\CLAVULANATE POTASSIUM
     Indication: Pneumonia
     Dosage: 1 EVERY 12 HOURS
     Route: 048
  6. AMOXICILLIN\CLAVULANATE POTASSIUM [Concomitant]
     Active Substance: AMOXICILLIN\CLAVULANATE POTASSIUM
     Dosage: 1 EVERY 12 HOURS
     Route: 048
  7. AZITHROMYCIN [Concomitant]
     Active Substance: AZITHROMYCIN
     Indication: Pneumonia
     Dosage: 500 MILLIGRAM
     Route: 042
  8. AZITHROMYCIN [Concomitant]
     Active Substance: AZITHROMYCIN
     Dosage: 1 EVERY 1 DAYS
     Route: 042
  9. SODIUM CHLORIDE [Concomitant]
     Active Substance: SODIUM CHLORIDE
     Indication: Hypotension
     Dosage: 500 MILLIGRAM
     Route: 042
  10. TRAZODONE [Concomitant]
     Active Substance: TRAZODONE HYDROCHLORIDE
     Indication: Sleep disorder
     Dosage: UNK
     Route: 048
  11. CEFTRIAXONE [Concomitant]
     Active Substance: CEFTRIAXONE
     Indication: Pneumonia
     Dosage: 1 EVERY 1 DAYS
     Route: 042
  12. CEFTRIAXONE [Concomitant]
     Active Substance: CEFTRIAXONE
     Dosage: 1 GRAM
     Route: 042
  13. POLYETHYLENE GLYCOLS [Concomitant]
     Active Substance: POLYETHYLENE GLYCOLS
     Indication: Constipation
     Dosage: 1 EVERY 1 DAYS
     Route: 048

REACTIONS (6)
  - Atrial thrombosis [Recovered/Resolved]
  - Haemoglobin decreased [Recovered/Resolved]
  - Pericardial effusion [Recovered/Resolved]
  - Cardiac tamponade [Recovered/Resolved]
  - Pulmonary embolism [Recovered/Resolved]
  - Heavy menstrual bleeding [Recovered/Resolved]
